FAERS Safety Report 12808596 (Version 1)
Quarter: 2016Q4

REPORT INFORMATION
  Report Type: Report from Study
  Country: US (occurrence: US)
  Receive Date: 20161004
  Receipt Date: 20161004
  Transmission Date: 20170207
  Serious: Yes (Other)
  Sender: FDA-Public Use
  Company Number: US-BIOGEN-2014BI065632

PATIENT
  Age: 66 Year
  Sex: Female

DRUGS (2)
  1. TYLENOL [Concomitant]
     Active Substance: ACETAMINOPHEN
     Indication: PREMEDICATION
     Route: 065
  2. AVONEX [Suspect]
     Active Substance: INTERFERON BETA-1A
     Indication: MULTIPLE SCLEROSIS
     Route: 030
     Dates: start: 20000501

REACTIONS (15)
  - Neck pain [Recovered/Resolved]
  - Uhthoff^s phenomenon [Recovered/Resolved]
  - Fall [Recovered/Resolved]
  - Spinal operation [Unknown]
  - Clavicle fracture [Recovered/Resolved]
  - Back pain [Not Recovered/Not Resolved]
  - Balance disorder [Unknown]
  - Muscular weakness [Not Recovered/Not Resolved]
  - Spinal compression fracture [Not Recovered/Not Resolved]
  - Fatigue [Not Recovered/Not Resolved]
  - Headache [Recovered/Resolved]
  - Multiple sclerosis relapse [Unknown]
  - Urinary tract infection [Recovered/Resolved]
  - Gait disturbance [Not Recovered/Not Resolved]
  - Speech disorder [Recovered/Resolved]

NARRATIVE: CASE EVENT DATE: 20091201
